FAERS Safety Report 9371183 (Version 1)
Quarter: 2013Q2

REPORT INFORMATION
  Report Type: Spontaneous
  Country: US (occurrence: None)
  Receive Date: 20130626
  Receipt Date: 20130626
  Transmission Date: 20140414
  Serious: No
  Sender: FDA-Public Use
  Company Number: None

PATIENT
  Age: 83 Year
  Sex: Male
  Weight: 70.31 kg

DRUGS (12)
  1. ATORVASTATIN CALCIUM [Suspect]
     Indication: BLOOD CHOLESTEROL INCREASED
     Route: 048
     Dates: start: 20130325, end: 20130525
  2. SYNTHROID [Concomitant]
  3. DIGOXIN [Concomitant]
  4. LOSARTAN [Concomitant]
  5. WARFARI [Concomitant]
  6. ASPIRIN [Concomitant]
  7. METOROLOL SUCC [Concomitant]
  8. DONEPEZIL [Concomitant]
  9. VITAMIN B [Concomitant]
  10. VITAMIN A [Concomitant]
  11. VITAMIN D [Concomitant]
  12. FISHOIL [Concomitant]

REACTIONS (2)
  - Myalgia [None]
  - Product substitution issue [None]
